FAERS Safety Report 9462145 (Version 2)
Quarter: 2013Q3

REPORT INFORMATION
  Report Type: Spontaneous
  Country: US (occurrence: None)
  Receive Date: 20130813
  Receipt Date: 20130912
  Transmission Date: 20140515
  Serious: No
  Sender: FDA-Public Use
  Company Number: JPI-P-034286

PATIENT
  Age: 61 Year
  Sex: Female

DRUGS (1)
  1. XYREM [Suspect]
     Indication: FIBROMYALGIA
     Dosage: 6GM (3GM, 2 IN 1 D) ORAL
     Route: 048
     Dates: start: 20060426

REACTIONS (2)
  - Uterine dilation and curettage [None]
  - Postmenopausal haemorrhage [None]
